FAERS Safety Report 12686707 (Version 1)
Quarter: 2016Q3

REPORT INFORMATION
  Report Type: Spontaneous
  Country: US (occurrence: US)
  Receive Date: 20160825
  Receipt Date: 20160825
  Transmission Date: 20161109
  Serious: No
  Sender: FDA-Public Use
  Company Number: US-JAZZ-2016-US-006797

PATIENT
  Sex: Female

DRUGS (44)
  1. XYREM [Suspect]
     Active Substance: SODIUM OXYBATE
     Dosage: 3 G, QD
     Route: 048
  2. DIAZEPAM. [Concomitant]
     Active Substance: DIAZEPAM
  3. CITALOPRAM [Concomitant]
     Active Substance: CITALOPRAM HYDROBROMIDE
  4. NITROFURANTOIN. [Concomitant]
     Active Substance: NITROFURANTOIN
  5. ROPINIROLE HCL [Concomitant]
     Active Substance: ROPINIROLE HYDROCHLORIDE
  6. VITAMIN D3 [Concomitant]
     Active Substance: CHOLECALCIFEROL
  7. XYREM [Suspect]
     Active Substance: SODIUM OXYBATE
     Dosage: DOSE ADJUSTMENTS
     Route: 048
  8. CALCITRIOL. [Concomitant]
     Active Substance: CALCITRIOL
  9. METHOTREXATE. [Concomitant]
     Active Substance: METHOTREXATE
  10. NUVIGIL [Concomitant]
     Active Substance: ARMODAFINIL
  11. OMEGA-3 ACIDS [Concomitant]
     Active Substance: OMEGA-3 FATTY ACIDS
  12. OMEPRAZOLE. [Concomitant]
     Active Substance: OMEPRAZOLE
  13. OXYCODONE AND ACETAMINOPHEN [Concomitant]
     Active Substance: ACETAMINOPHEN\OXYCODONE HYDROCHLORIDE
  14. SIMVASTATIN. [Concomitant]
     Active Substance: SIMVASTATIN
  15. TAMSULOSIN HCL [Concomitant]
     Active Substance: TAMSULOSIN
  16. COREG [Concomitant]
     Active Substance: CARVEDILOL
  17. HYDROXYCHLOROQUINE [Concomitant]
     Active Substance: HYDROXYCHLOROQUINE
  18. MECLIZINE HCL [Concomitant]
     Active Substance: MECLIZINE HYDROCHLORIDE
  19. METHENAMINE HIPPURATE. [Concomitant]
     Active Substance: METHENAMINE HIPPURATE
  20. OXYBUTYNIN CHLORIDE. [Concomitant]
     Active Substance: OXYBUTYNIN CHLORIDE
  21. REGLAN [Concomitant]
     Active Substance: METOCLOPRAMIDE HYDROCHLORIDE
  22. ALEVE [Concomitant]
     Active Substance: NAPROXEN SODIUM
  23. BACLOFEN. [Concomitant]
     Active Substance: BACLOFEN
  24. CELECOXIB. [Concomitant]
     Active Substance: CELECOXIB
  25. CYCLOBENZAPRINE [Concomitant]
     Active Substance: CYCLOBENZAPRINE
  26. LISINOPRIL. [Concomitant]
     Active Substance: LISINOPRIL
  27. POTASSIUM 99 [Concomitant]
  28. SALSALATE. [Concomitant]
     Active Substance: SALSALATE
  29. DOXAZOSIN MESYLATE. [Concomitant]
     Active Substance: DOXAZOSIN MESYLATE
  30. SYNTHROID [Concomitant]
     Active Substance: LEVOTHYROXINE SODIUM
  31. VITAMIN C [Concomitant]
     Active Substance: ASCORBIC ACID
  32. ALKA-SELTZER [Concomitant]
     Active Substance: ANHYDROUS CITRIC ACID\ASPIRIN\SODIUM BICARBONATE
  33. FOLIC ACID. [Concomitant]
     Active Substance: FOLIC ACID
  34. XYREM [Suspect]
     Active Substance: SODIUM OXYBATE
     Indication: NARCOLEPSY
     Dosage: 2.25 G, BID
     Route: 048
     Dates: start: 201312, end: 201402
  35. XYREM [Suspect]
     Active Substance: SODIUM OXYBATE
     Dosage: 3 G, BID
     Route: 048
     Dates: start: 201503
  36. COENZYME Q10 [Concomitant]
     Active Substance: UBIDECARENONE
  37. ESCITALOPRAM [Concomitant]
     Active Substance: ESCITALOPRAM OXALATE
  38. IRON [Concomitant]
     Active Substance: IRON
  39. METOCLOPRAMIDE. [Concomitant]
     Active Substance: METOCLOPRAMIDE
  40. VITAMIN B12 [Concomitant]
     Active Substance: CYANOCOBALAMIN
  41. VITAMIN B6 [Concomitant]
     Active Substance: PYRIDOXINE HYDROCHLORIDE
  42. ZINC GLUCONATE [Concomitant]
     Active Substance: ZINC GLUCONATE
  43. DIAZEPAM. [Concomitant]
     Active Substance: DIAZEPAM
  44. COLD + ALLERGY [Concomitant]

REACTIONS (9)
  - Disturbance in attention [Not Recovered/Not Resolved]
  - Flatulence [Unknown]
  - Visual impairment [Not Recovered/Not Resolved]
  - Dizziness [Unknown]
  - Malaise [Not Recovered/Not Resolved]
  - Disorientation [Unknown]
  - Abdominal pain upper [Not Recovered/Not Resolved]
  - Fall [Recovered/Resolved]
  - Bladder spasm [Unknown]

NARRATIVE: CASE EVENT DATE: 2015
